FAERS Safety Report 14813240 (Version 1)
Quarter: 2018Q2

REPORT INFORMATION
  Report Type: Spontaneous
  Country: US (occurrence: US)
  Receive Date: 20180426
  Receipt Date: 20180426
  Transmission Date: 20180711
  Serious: No
  Sender: FDA-Public Use
  Company Number: US-009507513-1710USA012937

PATIENT
  Sex: Female
  Weight: 46.71 kg

DRUGS (1)
  1. NEXPLANON [Suspect]
     Active Substance: ETONOGESTREL
     Dosage: STRENGTH: 68 MG; 68 MG/1 ROD PER 3 YEARS
     Route: 059
     Dates: start: 20171006, end: 20171006

REACTIONS (3)
  - Device difficult to use [Not Recovered/Not Resolved]
  - Complication of device insertion [Not Recovered/Not Resolved]
  - No adverse event [Unknown]

NARRATIVE: CASE EVENT DATE: 20171006
